FAERS Safety Report 6221317-4 (Version None)
Quarter: 2009Q2

REPORT INFORMATION
  Report Type: 
  Country: None (occurrence: None)
  Receive Date: 20090610
  Receipt Date: 20090515
  Transmission Date: 20091009
  Serious: No
  Sender: FDA-Public Use
  Company Number: US-BAYER-200910806BCC

PATIENT
  Age: 3 Year
  Sex: Female
  Weight: 14 kg

DRUGS (1)
  1. ALEVE (CAPLET) [Suspect]
     Indication: ACCIDENTAL DRUG INTAKE BY CHILD
     Dosage: CHILD OPENED BOTTLE OF ALEVE (BOTTLE COUNT= 24) AND INGESTED ALL BUT 4 OR 5 CAPLETS
     Route: 048
     Dates: start: 20090309, end: 20090309

REACTIONS (1)
  - SKIN WARM [None]
